FAERS Safety Report 13026707 (Version 3)
Quarter: 2017Q1

REPORT INFORMATION
  Report Type: Spontaneous
  Country: US (occurrence: US)
  Receive Date: 20161214
  Receipt Date: 20170103
  Transmission Date: 20170428
  Serious: Yes (Hospitalization)
  Sender: FDA-Public Use
  Company Number: US-VERTEX PHARMACEUTICALS-2016-006886

PATIENT
  Age: 14 Year
  Sex: Male
  Weight: 41 kg

DRUGS (22)
  1. CHOLECALCIFEROL [Concomitant]
     Active Substance: CHOLECALCIFEROL
  2. ORKAMBI [Suspect]
     Active Substance: IVACAFTOR\LUMACAFTOR
     Indication: CYSTIC FIBROSIS
     Dosage: 2 DF (400/250 MG), BID
     Route: 048
     Dates: start: 201508
  3. CREON [Concomitant]
     Active Substance: PANCRELIPASE AMYLASE\PANCRELIPASE LIPASE\PANCRELIPASE PROTEASE
     Dosage: 3 WITH MEALS AND TWO CAPSULES WITH SNACKS.
     Route: 048
  4. CYTOTEC [Concomitant]
     Active Substance: MISOPROSTOL
     Dosage: 1 DF, TID
  5. VENTOLIN [Concomitant]
     Active Substance: ALBUTEROL SULFATE
     Indication: WHEEZING
  6. MIRALAX [Concomitant]
     Active Substance: POLYETHYLENE GLYCOL 3350
     Dosage: MIX ONE CAPFUL IN 8OZ, QD
     Route: 048
  7. AMIKACIN SULFATE. [Concomitant]
     Active Substance: AMIKACIN SULFATE
     Dosage: 1 DF, DAILY
  8. OMEPRAZOLE. [Concomitant]
     Active Substance: OMEPRAZOLE
     Route: 048
  9. AVELOX [Concomitant]
     Active Substance: MOXIFLOXACIN HYDROCHLORIDE
     Dosage: 600 MG, QD
     Route: 048
  10. PULMOZYME [Concomitant]
     Active Substance: DORNASE ALFA
     Dosage: 1 DF, QD
  11. VENTOLIN [Concomitant]
     Active Substance: ALBUTEROL SULFATE
     Indication: COUGH
     Dosage: 2 PUFFS, EVERY 4 TO 5 HOURS, PRN
  12. SYMBICORT [Concomitant]
     Active Substance: BUDESONIDE\FORMOTEROL FUMARATE DIHYDRATE
     Dosage: 2 DF, DAILY
  13. HYPERSAL [Concomitant]
     Dosage: 1 DF, BID
  14. CYPROHEPTADINE. [Concomitant]
     Active Substance: CYPROHEPTADINE
     Dosage: 1 DF, BID
     Route: 048
  15. ACTIGALL [Concomitant]
     Active Substance: URSODIOL
     Dosage: 1 DF, BID
     Route: 048
  16. OMNITROPE [Concomitant]
     Active Substance: SOMATROPIN
     Dosage: 2.6 MG, SIX DAYS/ WEEK
     Route: 058
  17. SUCRALFATE. [Concomitant]
     Active Substance: SUCRALFATE
     Dosage: UNK, BID
  18. ALBUTEROL. [Concomitant]
     Active Substance: ALBUTEROL
     Indication: WHEEZING
     Dosage: ONE VAIL, EVERY 4- 6 HOURS
  19. ALBUTEROL. [Concomitant]
     Active Substance: ALBUTEROL
     Indication: DYSPNOEA
  20. TUMS [Concomitant]
     Active Substance: CALCIUM CARBONATE
     Indication: DYSPEPSIA
     Dosage: 1 DF, EVERU 8 HOURS
     Route: 048
  21. ETHAMBUTOL [Concomitant]
     Active Substance: ETHAMBUTOL HYDROCHLORIDE
     Dosage: 1000 MG, DAILY
  22. MVW COMPLETE D [Concomitant]
     Dosage: 1, DF, QD

REACTIONS (2)
  - Pneumonia [Recovered/Resolved]
  - Infective pulmonary exacerbation of cystic fibrosis [Recovered/Resolved]

NARRATIVE: CASE EVENT DATE: 201610
